FAERS Safety Report 12422766 (Version 2)
Quarter: 2016Q2

REPORT INFORMATION
  Report Type: Spontaneous
  Country: CH (occurrence: CH)
  Receive Date: 20160601
  Receipt Date: 20160602
  Transmission Date: 20160815
  Serious: Yes (Hospitalization, Other)
  Sender: FDA-Public Use
  Company Number: CH-ASTRAZENECA-2016SE56087

PATIENT
  Age: 32502 Day
  Sex: Male

DRUGS (19)
  1. SINTROM [Suspect]
     Active Substance: ACENOCOUMAROL
     Indication: ATRIAL FIBRILLATION
     Route: 048
     Dates: start: 20130301, end: 20130303
  2. DIAMICRON [Concomitant]
     Active Substance: GLICLAZIDE
     Route: 048
  3. OMEZOL [Concomitant]
     Active Substance: OMEPRAZOLE
     Route: 048
     Dates: end: 2013
  4. DIGOXIN. [Concomitant]
     Active Substance: DIGOXIN
     Route: 048
     Dates: end: 20130301
  5. TOREM [Concomitant]
     Active Substance: TORSEMIDE
  6. VI-DE 3 [Concomitant]
     Active Substance: CHOLECALCIFEROL
     Route: 048
  7. BELOC ZOK [Suspect]
     Active Substance: METOPROLOL SUCCINATE
     Indication: CARDIAC FAILURE
     Route: 048
     Dates: start: 20130228, end: 20130305
  8. IRFEN [Suspect]
     Active Substance: IBUPROFEN
     Route: 048
     Dates: start: 201309, end: 201310
  9. SINTROM [Suspect]
     Active Substance: ACENOCOUMAROL
     Indication: ATRIAL FIBRILLATION
     Route: 048
     Dates: start: 20130327
  10. COSAAR [Suspect]
     Active Substance: LOSARTAN POTASSIUM
     Indication: HYPOTENSION
     Route: 048
  11. BELOC ZOK [Suspect]
     Active Substance: METOPROLOL SUCCINATE
     Indication: CARDIAC FAILURE
     Route: 048
     Dates: start: 20130305, end: 20130306
  12. COSAAR [Suspect]
     Active Substance: LOSARTAN POTASSIUM
     Indication: HYPOTENSION
     Route: 048
  13. METFIN [Concomitant]
     Active Substance: METFORMIN HYDROCHLORIDE
     Route: 048
  14. ALDACTONE [Concomitant]
     Active Substance: SPIRONOLACTONE
     Route: 048
  15. NEXIUM [Concomitant]
     Active Substance: ESOMEPRAZOLE MAGNESIUM
     Route: 048
     Dates: start: 2013
  16. BELOC ZOK [Suspect]
     Active Substance: METOPROLOL SUCCINATE
     Indication: CARDIAC FAILURE
     Route: 048
     Dates: start: 20130306, end: 20130307
  17. SINTROM [Suspect]
     Active Substance: ACENOCOUMAROL
     Indication: ATRIAL FIBRILLATION
     Route: 048
     Dates: start: 20130307
  18. DANCOR [Concomitant]
     Active Substance: NICORANDIL
     Route: 048
  19. DUROGESIC [Concomitant]
     Active Substance: FENTANYL
     Dosage: 25UG, EVERY HOUR
     Route: 062

REACTIONS (9)
  - Hyperkalaemia [Recovered/Resolved]
  - Bradycardia [Unknown]
  - Haemoglobin decreased [Unknown]
  - Cardiac failure [Recovered/Resolved]
  - International normalised ratio increased [Recovered/Resolved]
  - Myasthenia gravis [Unknown]
  - Inguinal hernia [Unknown]
  - Intervertebral disc protrusion [Unknown]
  - Post procedural haematoma [Recovered/Resolved]

NARRATIVE: CASE EVENT DATE: 20130225
